FAERS Safety Report 8375939-5 (Version None)
Quarter: 2012Q2

REPORT INFORMATION
  Report Type: 
  Country: None (occurrence: None)
  Receive Date: 20120522
  Receipt Date: 20120515
  Transmission Date: 20120825
  Serious: Yes (Other)
  Sender: FDA-Public Use
  Company Number: US-AMGEN-USASP2011064444

PATIENT
  Age: 78 Year
  Sex: Male
  Weight: 51.5 kg

DRUGS (8)
  1. DOC-Q-LACE [Concomitant]
     Dosage: UNK
     Dates: start: 20090825
  2. DILTIAZEM [Concomitant]
     Dosage: UNK
     Dates: start: 20090825
  3. FOLIC ACID [Concomitant]
     Dosage: UNK
     Dates: start: 20090707
  4. NEPHRO VITE RX [Concomitant]
     Dosage: UNK
     Dates: start: 20090707
  5. RAMIPRIL [Concomitant]
     Dosage: UNK
     Dates: start: 20090825
  6. CINACALCET HYDROCHLORIDE [Suspect]
     Indication: HYPERPARATHYROIDISM
     Dosage: 180 MG, QD
     Route: 048
     Dates: start: 20111129, end: 20111201
  7. HECTOROL [Concomitant]
     Dosage: UNK
     Dates: start: 20090101
  8. ZYRTEC [Concomitant]
     Dosage: UNK
     Dates: start: 20090825

REACTIONS (2)
  - WRONG DRUG ADMINISTERED [None]
  - VOMITING [None]
